FAERS Safety Report 12568252 (Version 2)
Quarter: 2016Q3

REPORT INFORMATION
  Report Type: Report from Study
  Country: US (occurrence: US)
  Receive Date: 20160718
  Receipt Date: 20160720
  Transmission Date: 20161109
  Serious: Yes (Death, Hospitalization, Other)
  Sender: FDA-Public Use
  Company Number: US-ABBVIE-16K-163-1676579-00

PATIENT
  Age: 28 Year
  Sex: Male

DRUGS (2)
  1. HUMIRA [Suspect]
     Active Substance: ADALIMUMAB
     Indication: COLITIS ULCERATIVE
     Dosage: LOADING DOSE
     Route: 058
     Dates: start: 20160615, end: 20160615
  2. HUMIRA [Suspect]
     Active Substance: ADALIMUMAB
     Dosage: LOADING DOSE
     Route: 058
     Dates: start: 20160629, end: 20160629

REACTIONS (5)
  - Haemorrhage [Unknown]
  - Pain in extremity [Unknown]
  - Pulmonary embolism [Fatal]
  - Dyspnoea [Unknown]
  - Thrombosis [Unknown]

NARRATIVE: CASE EVENT DATE: 201606
